FAERS Safety Report 14328265 (Version 2)
Quarter: 2018Q1

REPORT INFORMATION
  Report Type: Spontaneous
  Country: US (occurrence: US)
  Receive Date: 20171227
  Receipt Date: 20180123
  Transmission Date: 20180509
  Serious: No
  Sender: FDA-Public Use
  Company Number: US-PFIZER INC-2017548628

PATIENT
  Age: 80 Year
  Sex: Male

DRUGS (1)
  1. XELJANZ XR [Suspect]
     Active Substance: TOFACITINIB CITRATE
     Indication: ARTHRITIS
     Dosage: UNK

REACTIONS (3)
  - Joint stiffness [Not Recovered/Not Resolved]
  - Arthralgia [Recovering/Resolving]
  - Infection [Unknown]
